FAERS Safety Report 6855867-4 (Version None)
Quarter: 2010Q2

REPORT INFORMATION
  Report Type: 
  Country: None (occurrence: None)
  Receive Date: 20100629
  Receipt Date: 20100322
  Transmission Date: 20101027
  Serious: No
  Sender: FDA-Public Use
  Company Number: US-WYE-H14311810

PATIENT
  Age: 56 Year
  Sex: Female
  Weight: 56.75 kg

DRUGS (7)
  1. PRISTIQ [Suspect]
     Indication: DEPRESSION
     Dosage: 50 MG 1X PER 1 DAY, ORAL
     Route: 048
     Dates: start: 20100317
  2. ZOLOFT [Suspect]
     Indication: DEPRESSION
     Dosage: 200 MG 1X PER 1 DAY, ORAL
     Route: 048
     Dates: start: 20090501, end: 20100317
  3. GLUCOSAMINE (GLUCOSAMINE) [Concomitant]
  4. ST. JOHN'S WORT (HYPERICUM PERFORATUM) [Concomitant]
  5. VITAMIN A [Concomitant]
  6. CALCIUM (CALCIUM) [Concomitant]
  7. COD-LIVER (COD-LIVER OIL) [Concomitant]

REACTIONS (5)
  - CHILLS [None]
  - FEELING ABNORMAL [None]
  - HEADACHE [None]
  - INFLUENZA LIKE ILLNESS [None]
  - NIGHTMARE [None]
